FAERS Safety Report 17461651 (Version 1)
Quarter: 2020Q1

REPORT INFORMATION
  Report Type: Spontaneous
  Country: US (occurrence: US)
  Receive Date: 20200226
  Receipt Date: 20200226
  Transmission Date: 20200409
  Serious: Yes (Other)
  Sender: FDA-Public Use
  Company Number: US-TEVA-2020-US-1191205

PATIENT
  Age: 67 Year
  Sex: Female

DRUGS (11)
  1. AUSTEDO [Suspect]
     Active Substance: DEUTETRABENAZINE
     Dosage: 24 MILLIGRAM DAILY; WEEK 3 OF TITRATION AND ONGOING
     Route: 048
     Dates: start: 20200129
  2. PROVIGIL [Concomitant]
     Active Substance: MODAFINIL
     Route: 048
  3. RISPERDAL [Concomitant]
     Active Substance: RISPERIDONE
     Route: 048
  4. KLONOPIN [Concomitant]
     Active Substance: CLONAZEPAM
     Route: 048
  5. SYMBICORT [Concomitant]
     Active Substance: BUDESONIDE\FORMOTEROL FUMARATE DIHYDRATE
     Dosage: INHALATION AEROSOL 80-4.5 MCG/ACT
  6. PROAIR HFA [Concomitant]
     Active Substance: ALBUTEROL SULFATE
     Dosage: INHALATION AEROSOL SOLUTION 108 (90 BASE) MCG/ACT
  7. XOLAIR [Concomitant]
     Active Substance: OMALIZUMAB
     Route: 058
  8. AUSTEDO [Suspect]
     Active Substance: DEUTETRABENAZINE
     Indication: TARDIVE DYSKINESIA
     Dosage: 12 MILLIGRAM DAILY; WEEK 1 OF TITRATION
     Route: 048
  9. TOPIRAMATE. [Concomitant]
     Active Substance: TOPIRAMATE
     Route: 048
  10. LAVENDER OIL [Concomitant]
     Active Substance: LAVENDER OIL
  11. AUSTEDO [Suspect]
     Active Substance: DEUTETRABENAZINE
     Dosage: 18 MILLIGRAM DAILY; WEEK 2 OF TITRATION
     Route: 048
     Dates: start: 20200122, end: 20200128

REACTIONS (2)
  - Sinusitis [Unknown]
  - Nasal disorder [Unknown]

NARRATIVE: CASE EVENT DATE: 20200218
